FAERS Safety Report 17080403 (Version 1)
Quarter: 2019Q4

REPORT INFORMATION
  Report Type: Spontaneous
  Country: US (occurrence: US)
  Receive Date: 20191029
  Receipt Date: 20191029
  Transmission Date: 20200122
  Serious: Yes (Death, Hospitalization, Other)
  Sender: FDA-Public Use
  Company Number: None

PATIENT
  Age: 50 Year
  Sex: Male
  Weight: 108.86 kg

DRUGS (11)
  1. ASPERONE [Concomitant]
  2. NETOTOPROL [Concomitant]
  3. ATORVASTATIN [Concomitant]
     Active Substance: ATORVASTATIN
  4. FOLIC ACID. [Concomitant]
     Active Substance: FOLIC ACID
  5. DEFIBRILATOR [Concomitant]
  6. ELIQUIS [Suspect]
     Active Substance: APIXABAN
     Indication: ANTICOAGULANT THERAPY
     Dosage: ?          QUANTITY:5 MG MILLIGRAM(S);?
     Route: 048
     Dates: start: 20190224, end: 20190513
  7. ELIQUIS [Concomitant]
     Active Substance: APIXABAN
  8. LISINPRIL [Concomitant]
  9. AMBRIEN [Concomitant]
  10. LASIX [Concomitant]
     Active Substance: FUROSEMIDE
  11. MAGNESIOMOXIDE [Concomitant]

REACTIONS (9)
  - Cerebral haemorrhage [None]
  - Hypertension [None]
  - Asthenia [None]
  - Gastric haemorrhage [None]
  - Fall [None]
  - Rib fracture [None]
  - Dehydration [None]
  - Malaise [None]
  - Pulmonary haemorrhage [None]
